FAERS Safety Report 9988477 (Version 1)
Quarter: 2014Q1

REPORT INFORMATION
  Report Type: Spontaneous
  Country: US (occurrence: US)
  Receive Date: 20140310
  Receipt Date: 20140310
  Transmission Date: 20141002
  Serious: No
  Sender: FDA-Public Use
  Company Number: US-BIOGENIDEC-2014BI017419

PATIENT
  Age: 57 Year
  Sex: Female

DRUGS (10)
  1. TECFIDERA [Suspect]
     Indication: MULTIPLE SCLEROSIS
     Route: 048
     Dates: start: 20140217
  2. LASIX [Concomitant]
  3. BACLOFEN [Concomitant]
  4. NUVIGIL [Concomitant]
  5. LISINOPRIL [Concomitant]
  6. ASPIRIN [Concomitant]
  7. FISH OIL [Concomitant]
  8. VITAMIN D [Concomitant]
  9. DETROL [Concomitant]
  10. PEPTO BISMOL [Concomitant]

REACTIONS (1)
  - Fatigue [Unknown]
